FAERS Safety Report 25073140 (Version 3)
Quarter: 2025Q3

REPORT INFORMATION
  Report Type: Spontaneous
  Country: EU (occurrence: EU)
  Receive Date: 20250313
  Receipt Date: 20250730
  Transmission Date: 20251020
  Serious: Yes (Hospitalization, Other)
  Sender: MERCK SHARP & DOHME LLC
  Company Number: EU-009507513-2403DEU008013

PATIENT
  Age: 72 Year
  Sex: Male
  Weight: 68 kg

DRUGS (2)
  1. KEYTRUDA [Suspect]
     Active Substance: PEMBROLIZUMAB
     Indication: Transitional cell carcinoma
     Route: 042
     Dates: start: 20240201, end: 20240201
  2. PADCEV [Suspect]
     Active Substance: ENFORTUMAB VEDOTIN-EJFV
     Indication: Transitional cell carcinoma metastatic
     Dates: start: 20240201, end: 20240208

REACTIONS (12)
  - Immune-mediated adverse reaction [Not Recovered/Not Resolved]
  - Troponin C increased [Recovered/Resolved]
  - Muscular weakness [Unknown]
  - Chemotherapy [Unknown]
  - Hepatitis [Recovering/Resolving]
  - Rhabdomyolysis [Not Recovered/Not Resolved]
  - Myositis [Recovered/Resolved]
  - Dysphagia [Not Recovered/Not Resolved]
  - Dysphonia [Not Recovered/Not Resolved]
  - Erythema [Recovering/Resolving]
  - Eczema [Unknown]
  - Therapy partial responder [Unknown]

NARRATIVE: CASE EVENT DATE: 20240101
